FAERS Safety Report 10716633 (Version 1)
Quarter: 2015Q1

REPORT INFORMATION
  Report Type: Spontaneous
  Country: US (occurrence: None)
  Receive Date: 20150115
  Receipt Date: 20150115
  Transmission Date: 20150721
  Serious: Yes (Life-Threatening, Hospitalization, Disabling)
  Sender: FDA-Public Use
  Company Number: None

PATIENT
  Age: 30 Year
  Sex: Male
  Weight: 72.58 kg

DRUGS (1)
  1. CIPROFLOXACIN. [Suspect]
     Active Substance: CIPROFLOXACIN
     Indication: INFECTION PROPHYLAXIS
     Dosage: 1 PILLS, TWICE DAILY, TAKEN BY MOUTH
     Route: 048
     Dates: start: 20140910, end: 20140917

REACTIONS (9)
  - Eye disorder [None]
  - Weight decreased [None]
  - Tendon disorder [None]
  - Tinnitus [None]
  - Depression [None]
  - Nausea [None]
  - Diarrhoea [None]
  - Activities of daily living impaired [None]
  - Impaired work ability [None]

NARRATIVE: CASE EVENT DATE: 20140910
